FAERS Safety Report 9179651 (Version 1)
Quarter: 2012Q4

REPORT INFORMATION
  Report Type: 
  Country: JP (occurrence: JP)
  Receive Date: 20121029
  Receipt Date: 20121029
  Transmission Date: 20130627
  Serious: Yes (Hospitalization)
  Sender: FDA-Public Use
  Company Number: JP-GLAXOSMITHKLINE-B0840601A

PATIENT
  Age: 6 None
  Sex: Female
  Weight: 43 kg

DRUGS (9)
  1. VALTREX [Suspect]
     Indication: HERPES ZOSTER
     Dosage: 500MG Per day
     Route: 048
     Dates: start: 20060701, end: 20060704
  2. BAYASPIRIN [Concomitant]
     Dosage: 100MG Per day
     Route: 048
  3. PREDONINE [Concomitant]
     Dosage: 2.5MG Per day
     Route: 048
  4. GASTER [Concomitant]
     Dosage: 10MG Per day
     Route: 048
  5. ALFAROL [Concomitant]
     Dosage: .25MCG Per day
     Route: 048
  6. BLOPRESS [Concomitant]
     Dosage: 8MG Per day
     Route: 048
  7. DEPAS [Concomitant]
     Dosage: .5MG Twice per day
     Route: 048
  8. SIGMART [Concomitant]
     Dosage: 5MG Three times per day
     Route: 048
  9. CALTAN [Concomitant]
     Dosage: 500MG Three times per day
     Route: 048

REACTIONS (6)
  - Dysarthria [Recovered/Resolved]
  - Dizziness [Recovered/Resolved]
  - Drug level increased [Recovered/Resolved]
  - Toxicity to various agents [Recovered/Resolved]
  - Central nervous system lesion [Recovered/Resolved]
  - Overdose [Unknown]
